FAERS Safety Report 17299197 (Version 1)
Quarter: 2020Q1

REPORT INFORMATION
  Report Type: Spontaneous
  Country: US (occurrence: US)
  Receive Date: 20200122
  Receipt Date: 20200122
  Transmission Date: 20200409
  Serious: Yes (Other)
  Sender: FDA-Public Use
  Company Number: US-NOVOPROD-703504

PATIENT
  Age: 77 Year
  Sex: Male

DRUGS (2)
  1. NOVOLIN N [Suspect]
     Active Substance: INSULIN HUMAN
     Indication: TYPE 1 DIABETES MELLITUS
     Dosage: 15 IU, QD (10 UNITS IN AM AND 5 UNITS IN PM)
     Route: 058
     Dates: start: 2017
  2. NOVOLIN N [Suspect]
     Active Substance: INSULIN HUMAN
     Dosage: CUT BACK ON THE DOSAGE
     Route: 058
     Dates: start: 20191129

REACTIONS (5)
  - Blood glucose decreased [Recovered/Resolved]
  - Product quality issue [Unknown]
  - Fall [Recovered/Resolved]
  - Fall [Recovered/Resolved]
  - Product label issue [Unknown]

NARRATIVE: CASE EVENT DATE: 20191128
